FAERS Safety Report 15280164 (Version 1)
Quarter: 2018Q3

REPORT INFORMATION
  Report Type: Spontaneous
  Country: US (occurrence: US)
  Receive Date: 20180731
  Receipt Date: 20180731
  Transmission Date: 20181010
  Serious: No
  Sender: FDA-Public Use
  Company Number: None

PATIENT
  Age: 59 Year
  Sex: Male

DRUGS (1)
  1. MAVYRET [Suspect]
     Active Substance: GLECAPREVIR\PIBRENTASVIR
     Dates: start: 20180729, end: 20180731

REACTIONS (4)
  - Urinary retention [None]
  - Fatigue [None]
  - Constipation [None]
  - Headache [None]

NARRATIVE: CASE EVENT DATE: 20180731
